FAERS Safety Report 11391130 (Version 1)
Quarter: 2015Q3

REPORT INFORMATION
  Report Type: Spontaneous
  Country: US (occurrence: None)
  Receive Date: 20150814
  Receipt Date: 20150814
  Transmission Date: 20151125
  Serious: Yes (Hospitalization)
  Sender: FDA-Public Use
  Company Number: None

PATIENT
  Age: 65 Year
  Sex: Female
  Weight: 54 kg

DRUGS (2)
  1. CISPLATIN. [Suspect]
     Active Substance: CISPLATIN
     Indication: FEBRILE NEUTROPENIA
     Dates: end: 20150721
  2. ETOPOSIDE (VP-16) [Suspect]
     Active Substance: ETOPOSIDE
     Dates: end: 20150723

REACTIONS (4)
  - Pyrexia [None]
  - Chills [None]
  - Oesophagitis [None]
  - Drug dose omission [None]

NARRATIVE: CASE EVENT DATE: 20150805
